FAERS Safety Report 8758720 (Version 1)
Quarter: 2012Q4

REPORT INFORMATION
  Report Type: Spontaneous
  Country: US (occurrence: None)
  Receive Date: 20120828
  Receipt Date: 20120828
  Transmission Date: 20130627
  Serious: Yes (Hospitalization)
  Sender: FDA-Public Use
  Company Number: None

PATIENT
  Age: 57 Year
  Sex: Male
  Weight: 96.4 kg

DRUGS (2)
  1. SULFAMETHOXAZOLE/TRIMETHOPRIM [Suspect]
     Route: 048
     Dates: start: 20120427, end: 20120428
  2. SULFAMETHOXAZOLE/TRIMETHOPRIM [Suspect]
     Route: 048
     Dates: start: 20120427, end: 20120428

REACTIONS (2)
  - Anaphylactic reaction [None]
  - Angioedema [None]
